FAERS Safety Report 7676952-3 (Version None)
Quarter: 2011Q3

REPORT INFORMATION
  Report Type: 
  Country: None (occurrence: None)
  Receive Date: 20110811
  Receipt Date: 20110809
  Transmission Date: 20111222
  Serious: Yes (Life-Threatening, Other)
  Sender: FDA-Public Use
  Company Number: PHHY2011BR71826

PATIENT
  Sex: Female

DRUGS (1)
  1. EXELON [Suspect]
     Dosage: 9.5 MG, UNK
     Route: 062

REACTIONS (5)
  - FEELING ABNORMAL [None]
  - VOMITING [None]
  - BLOOD PRESSURE FLUCTUATION [None]
  - APPARENT DEATH [None]
  - TREMOR [None]
